FAERS Safety Report 4664789-9 (Version None)
Quarter: 2005Q2

REPORT INFORMATION
  Report Type: 
  Country: None (occurrence: None)
  Receive Date: 20050517
  Receipt Date: 20050517
  Transmission Date: 20051028
  Serious: Yes (Hospitalization)
  Sender: FDA-Public Use
  Company Number: None

PATIENT
  Age: 54 Year
  Sex: Male

DRUGS (2)
  1. MORPHINE [Suspect]
     Indication: PAIN
     Dosage: 30MG Q12 PO
     Route: 048
     Dates: start: 20050203, end: 20050204
  2. MORPHINE [Suspect]
     Indication: PAIN
     Dosage: 45 MG Q12 PO
     Route: 048
     Dates: start: 20050204, end: 20050207

REACTIONS (3)
  - DIALYSIS [None]
  - MENTAL STATUS CHANGES [None]
  - OXYGEN SATURATION DECREASED [None]
